FAERS Safety Report 5409212-1 (Version None)
Quarter: 2007Q3

REPORT INFORMATION
  Report Type: 
  Country: None (occurrence: None)
  Receive Date: 20070807
  Receipt Date: 20070807
  Transmission Date: 20080115
  Serious: No
  Sender: FDA-Public Use
  Company Number: None

PATIENT
  Sex: Female

DRUGS (1)
  1. FELODIPINE [Suspect]
     Indication: BLOOD PRESSURE INCREASED
     Dosage: 10 MG PRN PO
     Route: 048

REACTIONS (1)
  - DRUG INEFFECTIVE [None]
